FAERS Safety Report 13739541 (Version 1)
Quarter: 2017Q3

REPORT INFORMATION
  Report Type: Spontaneous
  Country: US (occurrence: US)
  Receive Date: 20170711
  Receipt Date: 20170711
  Transmission Date: 20171127
  Serious: No
  Sender: FDA-Public Use
  Company Number: US-IPSEN BIOPHARMACEUTICALS, INC.-2014-4111

PATIENT

DRUGS (3)
  1. DYSPORT [Suspect]
     Active Substance: ABOBOTULINUMTOXINA
     Indication: SKIN WRINKLING
     Dosage: NOT REPORTED
     Route: 065
  2. DYSPORT [Suspect]
     Active Substance: ABOBOTULINUMTOXINA
     Indication: SKIN COSMETIC PROCEDURE
  3. DYSPORT [Suspect]
     Active Substance: ABOBOTULINUMTOXINA
     Indication: PRODUCT USE IN UNAPPROVED INDICATION

REACTIONS (6)
  - Vomiting [Unknown]
  - Dyspnoea [Unknown]
  - Dizziness [Unknown]
  - Nausea [Unknown]
  - Weight decreased [Unknown]
  - Headache [Unknown]
